FAERS Safety Report 24836447 (Version 1)
Quarter: 2025Q1

REPORT INFORMATION
  Report Type: Spontaneous
  Country: US (occurrence: US)
  Receive Date: 20250113
  Receipt Date: 20250113
  Transmission Date: 20250408
  Serious: Yes (Hospitalization, Other)
  Sender: BRISTOL-MYERS SQUIBB COMPANY
  Company Number: US-BRISTOL-MYERS SQUIBB COMPANY-2025-002408

PATIENT
  Age: 81 Year
  Sex: Male
  Weight: 70.76 kg

DRUGS (1)
  1. ELIQUIS [Suspect]
     Active Substance: APIXABAN
     Indication: Arterial thrombosis
     Dosage: TAKE 1 TABLET (5 MG TOTAL) BY MOUTH IN THE MORNING AND 1 TABLET (5 MG TOTAL) BEFORE BEDTIME
     Route: 048
     Dates: start: 20241117

REACTIONS (4)
  - Cardiac amyloidosis [Unknown]
  - Peripheral artery occlusion [Unknown]
  - Ventricular tachycardia [Unknown]
  - Off label use [Unknown]
